FAERS Safety Report 5497987-5 (Version None)
Quarter: 2007Q4

REPORT INFORMATION
  Report Type: 
  Country: None (occurrence: None)
  Receive Date: 20071025
  Receipt Date: 20071018
  Transmission Date: 20080405
  Serious: Yes (Hospitalization)
  Sender: FDA-Public Use
  Company Number: LB-SANOFI-SYNTHELABO-A01200711709

PATIENT
  Age: 60 Year
  Sex: Male

DRUGS (9)
  1. TRITACE [Concomitant]
     Indication: HYPERTENSION
     Dosage: UNK
     Route: 048
     Dates: start: 20070515
  2. PLAVIX [Suspect]
     Indication: MYOCARDIAL INFARCTION
     Route: 048
     Dates: start: 20070501
  3. LESCOL XL [Concomitant]
     Indication: DYSLIPIDAEMIA
     Dosage: 80 MG
     Route: 048
     Dates: start: 20070515
  4. GASTRIMUT [Concomitant]
     Indication: PROPHYLAXIS AGAINST GASTROINTESTINAL ULCER
     Dosage: 20 MG
     Route: 048
     Dates: start: 20070515
  5. CORVASAL [Concomitant]
     Indication: HYPERTENSION
     Dosage: 6 MG
     Route: 048
     Dates: start: 20070515
  6. CORVASAL [Concomitant]
     Indication: MYOCARDIAL INFARCTION
     Dosage: 6 MG
     Route: 048
     Dates: start: 20070515
  7. CONCOR [Concomitant]
     Indication: HYPERTENSION
     Dosage: 5 MG
     Route: 048
     Dates: start: 20070515
  8. ASPICOT [Concomitant]
     Indication: MYOCARDIAL INFARCTION
     Dosage: 100 MG
     Route: 048
     Dates: start: 20070515
  9. VASTAREL [Concomitant]
     Indication: PROPHYLAXIS
     Route: 048
     Dates: start: 20070515

REACTIONS (3)
  - ACUTE PULMONARY OEDEMA [None]
  - ACUTE RESPIRATORY DISTRESS SYNDROME [None]
  - DYSPNOEA [None]
